FAERS Safety Report 16094186 (Version 1)
Quarter: 2019Q2

REPORT INFORMATION
  Report Type: Spontaneous
  Country: US (occurrence: US)
  Receive Date: 20190319
  Receipt Date: 20190319
  Transmission Date: 20190711
  Serious: Yes (Hospitalization)
  Sender: FDA-Public Use
  Company Number: None

PATIENT
  Sex: Female

DRUGS (5)
  1. BACLOFEN. [Concomitant]
     Active Substance: BACLOFEN
  2. KEPPRA [Concomitant]
     Active Substance: LEVETIRACETAM
  3. ONFI [Concomitant]
     Active Substance: CLOBAZAM
  4. SABRIL [Concomitant]
     Active Substance: VIGABATRIN
  5. LUPRON DEPOT-PED [Suspect]
     Active Substance: LEUPROLIDE ACETATE
     Indication: HYPERPITUITARISM
     Dosage: ?          OTHER FREQUENCY:HYPERFUNCTION OF P;?
     Route: 030

REACTIONS (3)
  - Pneumonia [None]
  - Insurance issue [None]
  - Sepsis [None]
